FAERS Safety Report 20455748 (Version 1)
Quarter: 2022Q1

REPORT INFORMATION
  Report Type: Spontaneous
  Country: US (occurrence: None)
  Receive Date: 20220210
  Receipt Date: 20220210
  Transmission Date: 20220423
  Serious: Yes (Hospitalization)
  Sender: FDA-Public Use
  Company Number: None

PATIENT
  Sex: Male

DRUGS (2)
  1. TOBRAMYCIN [Suspect]
     Active Substance: TOBRAMYCIN
     Indication: Tracheitis
     Dosage: INHALE 300 MG VIA NEBULIZER TWICE DAILY FUR 28 DAYS ON, 28 DAYS OFF.
     Route: 055
     Dates: start: 20211223
  2. TOBRAMYCIN [Suspect]
     Active Substance: TOBRAMYCIN
     Indication: Idiopathic generalised epilepsy

REACTIONS (1)
  - Pneumonia [None]
